FAERS Safety Report 5988159-6 (Version None)
Quarter: 2008Q4

REPORT INFORMATION
  Report Type: 
  Country: None (occurrence: None)
  Receive Date: 20081208
  Receipt Date: 20081208
  Transmission Date: 20090506
  Serious: Yes (Hospitalization)
  Sender: FDA-Public Use
  Company Number: None

PATIENT
  Age: 43 Year
  Sex: Female
  Weight: 89.8122 kg

DRUGS (1)
  1. PROZAC [Suspect]
     Indication: MAJOR DEPRESSION
     Dosage: 60MG DAILY PO
     Route: 048
     Dates: start: 20060608, end: 20081125

REACTIONS (11)
  - AGITATION [None]
  - ANXIETY [None]
  - COMPULSIONS [None]
  - DEPRESSION [None]
  - FEAR [None]
  - HYPERPHAGIA [None]
  - PARANOIA [None]
  - REBOUND EFFECT [None]
  - SUICIDAL IDEATION [None]
  - VIOLENCE-RELATED SYMPTOM [None]
  - WEIGHT INCREASED [None]
